FAERS Safety Report 26118924 (Version 1)
Quarter: 2025Q4

REPORT INFORMATION
  Report Type: Spontaneous
  Country: EU (occurrence: EU)
  Receive Date: 20251204
  Receipt Date: 20251204
  Transmission Date: 20260117
  Serious: Yes (Disabling)
  Sender: GLAXOSMITHKLINE
  Company Number: None

PATIENT
  Age: 35 Year
  Sex: Female
  Weight: 80 kg

DRUGS (7)
  1. WELLBUTRIN [Suspect]
     Active Substance: BUPROPION HYDROCHLORIDE
     Indication: Depression
     Dosage: 150 MG, QD
     Route: 065
  2. WELLBUTRIN [Suspect]
     Active Substance: BUPROPION HYDROCHLORIDE
     Dosage: 150 MG, QD
  3. ARIPIPRAZOLE [Suspect]
     Active Substance: ARIPIPRAZOLE
     Indication: Anxiety
     Dosage: 5 MG
  4. ARIPIPRAZOLE [Suspect]
     Active Substance: ARIPIPRAZOLE
     Indication: Restlessness
  5. ARIPIPRAZOLE [Suspect]
     Active Substance: ARIPIPRAZOLE
     Indication: Anxiety
     Dosage: 10 MG
  6. ARIPIPRAZOLE [Suspect]
     Active Substance: ARIPIPRAZOLE
     Indication: Restlessness
     Dosage: 10 MG
  7. ABILIFY MAINTENA [Suspect]
     Active Substance: ARIPIPRAZOLE
     Indication: Product used for unknown indication
     Dosage: 1 DF, Q4W

REACTIONS (10)
  - Urge incontinence [Not Recovered/Not Resolved]
  - Palpitations [Recovered/Resolved]
  - Muscle spasms [Recovered/Resolved]
  - Fatigue [Recovered/Resolved with Sequelae]
  - Arthralgia [Recovering/Resolving]
  - Disturbance in attention [Recovering/Resolving]
  - Restlessness [Recovering/Resolving]
  - Dyspnoea [Recovered/Resolved]
  - Irritability [Recovering/Resolving]
  - Poor quality sleep [Recovering/Resolving]

NARRATIVE: CASE EVENT DATE: 20230601
